FAERS Safety Report 7865716-3 (Version None)
Quarter: 2011Q4

REPORT INFORMATION
  Report Type: 
  Country: None (occurrence: None)
  Receive Date: 20111028
  Receipt Date: 20111021
  Transmission Date: 20120403
  Serious: Yes (Other)
  Sender: FDA-Public Use
  Company Number: NO-BAYER-2011-079062

PATIENT
  Age: 48 Year
  Sex: Female

DRUGS (2)
  1. MIRENA [Suspect]
     Indication: DYSMENORRHOEA
     Dosage: UNK
     Dates: start: 19960101
  2. MIRENA [Suspect]
     Indication: MENORRHAGIA
     Dosage: UNK
     Route: 015
     Dates: start: 20040101

REACTIONS (3)
  - PROCEDURAL PAIN [None]
  - DEVICE DIFFICULT TO USE [None]
  - UTERINE LEIOMYOMA [None]
